FAERS Safety Report 23252424 (Version 1)
Quarter: 2023Q4

REPORT INFORMATION
  Report Type: Spontaneous
  Country: US (occurrence: None)
  Receive Date: 20231201
  Receipt Date: 20231201
  Transmission Date: 20240110
  Serious: Yes (Hospitalization)
  Sender: FDA-Public Use
  Company Number: None

PATIENT
  Sex: Female

DRUGS (3)
  1. ADCIRCA [Suspect]
     Active Substance: TADALAFIL
     Indication: Pulmonary arterial hypertension
     Dosage: FREQUENCY : DAILY;?
     Route: 048
     Dates: start: 202104
  2. METHOTREXATE [Concomitant]
     Active Substance: METHOTREXATE
  3. ORENITRAMER ER [Concomitant]

REACTIONS (5)
  - Weight increased [None]
  - Renal failure [None]
  - Dialysis [None]
  - Fluid retention [None]
  - Deafness [None]
